FAERS Safety Report 9164580 (Version 10)
Quarter: 2013Q4

REPORT INFORMATION
  Report Type: Spontaneous
  Country: GB (occurrence: GB)
  Receive Date: 20130315
  Receipt Date: 20131209
  Transmission Date: 20140711
  Serious: Yes (Death, Other)
  Sender: FDA-Public Use
  Company Number: PHFR2013GB001660

PATIENT
  Age: 61 Year
  Sex: Female

DRUGS (5)
  1. CLOZARIL [Suspect]
     Indication: SCHIZOPHRENIA
     Dosage: UNK
     Route: 048
     Dates: start: 20070412
  2. CLOZARIL [Suspect]
     Dosage: 200 MG, UNK
     Route: 048
  3. HYOSCINE [Concomitant]
     Indication: SALIVARY HYPERSECRETION
     Dosage: 300 UG, UNK
     Route: 048
  4. CLONAZEPAM [Concomitant]
     Indication: ANXIETY
     Dosage: 0.5 MG, UNK
     Route: 048
  5. CITALOPRAM [Concomitant]
     Indication: DELIRIUM
     Dosage: 40 MG, UNK
     Route: 048

REACTIONS (5)
  - Metastases to lung [Fatal]
  - Colon cancer [Fatal]
  - Gastrointestinal carcinoma [Fatal]
  - White blood cell count increased [Not Recovered/Not Resolved]
  - Neutrophil count increased [Unknown]
